FAERS Safety Report 6662101-7 (Version None)
Quarter: 2010Q1

REPORT INFORMATION
  Report Type: 
  Country: None (occurrence: None)
  Receive Date: 20100331
  Receipt Date: 20100326
  Transmission Date: 20100710
  Serious: Yes (Hospitalization)
  Sender: FDA-Public Use
  Company Number: JP-B.I. PHARMACEUTICALS,INC./RIDGEFIELD-2010-BP-03587NB

PATIENT
  Sex: Male

DRUGS (2)
  1. SPIRIVA [Suspect]
     Route: 055
  2. HARNAL [Concomitant]
     Route: 048

REACTIONS (2)
  - DYSURIA [None]
  - HOSPITALISATION [None]
